FAERS Safety Report 21668286 (Version 4)
Quarter: 2022Q4

REPORT INFORMATION
  Report Type: Report from Study
  Country: DO (occurrence: DO)
  Receive Date: 20221201
  Receipt Date: 20221227
  Transmission Date: 20230113
  Serious: Yes (Other)
  Sender: FDA-Public Use
  Company Number: DO-002147023-NVSC2022DO241511

PATIENT
  Age: 56 Year
  Sex: Male

DRUGS (3)
  1. KESIMPTA [Suspect]
     Active Substance: OFATUMUMAB
     Indication: Relapsing-remitting multiple sclerosis
     Dosage: 20 MG, QMO
     Route: 058
     Dates: start: 20221020
  2. KESIMPTA [Suspect]
     Active Substance: OFATUMUMAB
     Dosage: 20 MG (4 TH INDUCTION USE)
     Route: 058
     Dates: start: 20221124
  3. INSULIN NOS [Suspect]
     Active Substance: INSULIN NOS
     Indication: Diabetes mellitus
     Dosage: UNK
     Route: 065

REACTIONS (11)
  - Diabetic metabolic decompensation [Not Recovered/Not Resolved]
  - Pneumonia [Recovering/Resolving]
  - Loss of consciousness [Unknown]
  - Immunodeficiency [Unknown]
  - Depressed mood [Recovering/Resolving]
  - Fatigue [Unknown]
  - Underweight [Unknown]
  - Purulent discharge [Recovering/Resolving]
  - Breath odour [Recovering/Resolving]
  - Hypophagia [Recovering/Resolving]
  - Inappropriate schedule of product administration [Unknown]

NARRATIVE: CASE EVENT DATE: 20221117
